FAERS Safety Report 14475204 (Version 1)
Quarter: 2018Q1

REPORT INFORMATION
  Report Type: Spontaneous
  Country: FR (occurrence: FR)
  Receive Date: 20180201
  Receipt Date: 20180201
  Transmission Date: 20180509
  Serious: Yes (Other)
  Sender: FDA-Public Use
  Company Number: FR-ALLERGAN-1804521US

PATIENT
  Age: 14 Year
  Sex: Female

DRUGS (1)
  1. ATROPINE UNK [Suspect]
     Active Substance: ATROPINE SULFATE
     Indication: MYOPIA
     Dosage: 2 GTT, UNK
     Route: 047
     Dates: start: 20171016, end: 20180119

REACTIONS (7)
  - Nightmare [Recovering/Resolving]
  - Tremor [None]
  - Tremor [Recovering/Resolving]
  - Confusional state [Recovering/Resolving]
  - Depression [Recovering/Resolving]
  - Hallucination, visual [Recovering/Resolving]
  - Motor dysfunction [Recovering/Resolving]

NARRATIVE: CASE EVENT DATE: 20171105
